FAERS Safety Report 17699679 (Version 1)
Quarter: 2020Q2

REPORT INFORMATION
  Report Type: Spontaneous
  Country: CN (occurrence: CN)
  Receive Date: 20200423
  Receipt Date: 20200423
  Transmission Date: 20200714
  Serious: Yes (Disabling)
  Sender: FDA-Public Use
  Company Number: CN-PFIZER INC-2020156904

PATIENT
  Age: 33 Year
  Sex: Male
  Weight: 76 kg

DRUGS (6)
  1. REDUCED GLUTATHIONE SODIUM [Concomitant]
     Active Substance: GLUTATHIONE
     Indication: HEPATIC FUNCTION ABNORMAL
     Dosage: 1.8 G, 1X/DAY
     Route: 041
     Dates: start: 20200326, end: 20200329
  2. ROCEPHIN [Suspect]
     Active Substance: CEFTRIAXONE SODIUM
     Indication: PNEUMONIA
     Dosage: 3 G, 1X/DAY
     Route: 041
     Dates: start: 20200327, end: 20200329
  3. CIMETIDINE [Suspect]
     Active Substance: CIMETIDINE
     Indication: BASAL GANGLIA HAEMORRHAGE
     Dosage: 0.6 G, 1X/DAY
     Route: 041
     Dates: start: 20200325, end: 20200329
  4. HYZAAR [Concomitant]
     Active Substance: HYDROCHLOROTHIAZIDE\LOSARTAN POTASSIUM
     Indication: HYPERTENSION
     Dosage: 1 TABLET, 1X/DAY
     Route: 045
     Dates: start: 20200325, end: 20200329
  5. GAN SU [Concomitant]
     Indication: HEPATIC FUNCTION ABNORMAL
     Dosage: 3 G, 3X/DAY
     Route: 045
     Dates: start: 20200325, end: 20200329
  6. NORVASC [Suspect]
     Active Substance: AMLODIPINE BESYLATE
     Indication: HYPERTENSION
     Dosage: 5 MG, 1X/DAY
     Route: 045
     Dates: start: 20200325, end: 20200329

REACTIONS (6)
  - Product use issue [Unknown]
  - Hepatic function abnormal [Recovering/Resolving]
  - Condition aggravated [Recovering/Resolving]
  - Septic shock [Recovering/Resolving]
  - Myocardial infarction [Recovering/Resolving]
  - Off label use [Unknown]

NARRATIVE: CASE EVENT DATE: 20200325
